FAERS Safety Report 6181378-8 (Version None)
Quarter: 2009Q2

REPORT INFORMATION
  Report Type: 
  Country: None (occurrence: None)
  Receive Date: 20090506
  Receipt Date: 20090429
  Transmission Date: 20091009
  Serious: Yes (Disabling)
  Sender: FDA-Public Use
  Company Number: BR-ASTRAZENECA-2009UW08614

PATIENT
  Age: 52 Year
  Sex: Female

DRUGS (3)
  1. SEROQUEL [Suspect]
     Indication: DELIRIUM
     Route: 048
     Dates: start: 20090101
  2. SEROQUEL [Suspect]
     Route: 048
     Dates: start: 20090101
  3. SEROQUEL [Suspect]
     Route: 048
     Dates: start: 20090201

REACTIONS (6)
  - CHILLS [None]
  - DEPRESSED MOOD [None]
  - FALL [None]
  - HYPOTENSION [None]
  - MALAISE [None]
  - THYROID DISORDER [None]
